FAERS Safety Report 7746533-1 (Version None)
Quarter: 2011Q3

REPORT INFORMATION
  Report Type: 
  Country: None (occurrence: None)
  Receive Date: 20110913
  Receipt Date: 20110901
  Transmission Date: 20111222
  Serious: Yes (Hospitalization)
  Sender: FDA-Public Use
  Company Number: US-UCBSA-038511

PATIENT
  Sex: Male
  Weight: 49.5 kg

DRUGS (4)
  1. ZONEGRAN [Concomitant]
     Indication: EPILEPSY
     Route: 048
  2. LACOSAMIDE [Suspect]
     Indication: PARTIAL SEIZURES
     Route: 048
     Dates: start: 20110603
  3. DEPAKOTE [Concomitant]
     Indication: EPILEPSY
     Route: 048
     Dates: start: 20110713
  4. CLOBAZAM [Concomitant]
     Indication: EPILEPSY
     Route: 048

REACTIONS (3)
  - RESPIRATORY DISTRESS [None]
  - PNEUMONIA [None]
  - PYREXIA [None]
